FAERS Safety Report 9157938 (Version 2)
Quarter: 2013Q1

REPORT INFORMATION
  Report Type: Spontaneous
  Country: FR (occurrence: None)
  Receive Date: 20130213
  Receipt Date: 20130221
  Transmission Date: 20140127
  Serious: Yes (Hospitalization)
  Sender: FDA-Public Use
  Company Number: ACO_34153_2013

PATIENT
  Age: 49 Year
  Sex: Male

DRUGS (10)
  1. FAMPRIDINE-SR (FAMPRIDINE) TABLET [Suspect]
     Indication: MULTIPLE SCLEROSIS
     Route: 048
     Dates: start: 20120629
  2. LIORESAL (BACLOFEN) [Concomitant]
  3. PLAVIX (CLOPIDROGEL BISULFATE) [Concomitant]
  4. KARDEGIC (ACETYLSALICYLATE) [Concomitant]
  5. ALPRAZOLAM (ALPRAZOLAM) [Concomitant]
  6. ZOPICLONE (ZOPICLONE) [Concomitant]
  7. PANTOPRAZOLE (PANTOPRAZOLE) [Concomitant]
  8. RIVOTRIL (CLONAZEPAM) [Concomitant]
  9. JOSIR (TAMSULOSM HYDROCHLORIDE) [Concomitant]
  10. EPTAVIT (CALCIUM, COLECALCIFEROL) [Concomitant]

REACTIONS (7)
  - Lung disorder [None]
  - Hypotonia [None]
  - Chills [None]
  - Pyrexia [None]
  - Cough [None]
  - Extensor plantar response [None]
  - Bacterial infection [None]
